FAERS Safety Report 11072156 (Version 4)
Quarter: 2015Q3

REPORT INFORMATION
  Report Type: Spontaneous
  Country: IT (occurrence: IT)
  Receive Date: 20150428
  Receipt Date: 20150722
  Transmission Date: 20151125
  Serious: Yes (Hospitalization, Other)
  Sender: FDA-Public Use
  Company Number: IT-ELI_LILLY_AND_COMPANY-IT201409007590

PATIENT
  Age: 43 Year
  Sex: Male
  Weight: 80 kg

DRUGS (7)
  1. METADON                            /00068901/ [Concomitant]
     Indication: PRODUCT USED FOR UNKNOWN INDICATION
  2. DEPAKIN [Concomitant]
     Active Substance: VALPROATE SODIUM
     Dosage: 2 DF, QD
     Route: 065
     Dates: start: 2008
  3. ZYPADHERA [Suspect]
     Active Substance: OLANZAPINE PAMOATE
     Indication: SCHIZOPHRENIA
     Dosage: 405 MG, MONTHLY (1/M)
     Route: 030
     Dates: start: 201302, end: 201408
  4. ZYPADHERA [Suspect]
     Active Substance: OLANZAPINE PAMOATE
     Dosage: 210 MG, SINGLE
     Route: 030
     Dates: start: 20140806, end: 20140806
  5. AKINETON [Concomitant]
     Active Substance: BIPERIDEN HYDROCHLORIDE
     Dosage: 1 DF, QD
     Route: 065
     Dates: start: 2011
  6. SUBOXONE [Concomitant]
     Active Substance: BUPRENORPHINE HYDROCHLORIDE\NALOXONE HYDROCHLORIDE
     Dosage: 4 MG, QD
     Route: 065
     Dates: start: 2011
  7. RIVOTRIL [Concomitant]
     Active Substance: CLONAZEPAM
     Dosage: 20 DF, QD
     Route: 065

REACTIONS (9)
  - Blood creatine phosphokinase increased [Recovered/Resolved]
  - Confusional state [Unknown]
  - Catatonia [Recovered/Resolved]
  - Oxygen saturation decreased [Unknown]
  - Agitation [Recovered/Resolved]
  - Coma [Unknown]
  - Sopor [Recovered/Resolved]
  - Unresponsive to stimuli [Recovered/Resolved]
  - Loss of consciousness [Unknown]

NARRATIVE: CASE EVENT DATE: 20140806
